FAERS Safety Report 5207879-4 (Version None)
Quarter: 2007Q1

REPORT INFORMATION
  Report Type: 
  Country: None (occurrence: None)
  Receive Date: 20070112
  Receipt Date: 20070108
  Transmission Date: 20070707
  Serious: Yes (Other)
  Sender: FDA-Public Use
  Company Number: ES-PFIZER INC-2007002598

PATIENT
  Age: 37 Year
  Sex: Male

DRUGS (2)
  1. SILDENAFIL CITRATE [Suspect]
     Indication: ERECTILE DYSFUNCTION
     Route: 048
  2. COULDINA [Concomitant]
     Route: 048
     Dates: start: 20060101, end: 20060101

REACTIONS (1)
  - FACIAL PALSY [None]
